FAERS Safety Report 4851355-5 (Version None)
Quarter: 2005Q4

REPORT INFORMATION
  Report Type: 
  Country: None (occurrence: None)
  Receive Date: 20051212
  Receipt Date: 20051201
  Transmission Date: 20060501
  Serious: Yes (Hospitalization)
  Sender: FDA-Public Use
  Company Number: PHBS2005JP18011

PATIENT
  Age: 67 Year
  Sex: Male

DRUGS (5)
  1. AUGMENTIN [Concomitant]
     Dates: start: 20050430, end: 20050502
  2. TIZANIDINE HCL [Concomitant]
     Dates: end: 20050506
  3. NORVASC [Concomitant]
     Route: 048
     Dates: end: 20050506
  4. LOXONIN [Concomitant]
     Route: 048
     Dates: start: 20050430, end: 20050502
  5. DIOVAN [Suspect]
     Indication: HYPERTENSION
     Route: 048
     Dates: end: 20050506

REACTIONS (11)
  - ALANINE AMINOTRANSFERASE INCREASED [None]
  - BLOOD GLUCOSE INCREASED [None]
  - BLOOD UREA INCREASED [None]
  - C-REACTIVE PROTEIN INCREASED [None]
  - DRUG HYPERSENSITIVITY [None]
  - GAMMA-GLUTAMYLTRANSFERASE INCREASED [None]
  - HEPATIC FUNCTION ABNORMAL [None]
  - PURPURA [None]
  - RASH [None]
  - RENAL FUNCTION TEST ABNORMAL [None]
  - WHITE BLOOD CELL COUNT INCREASED [None]
